FAERS Safety Report 13104532 (Version 2)
Quarter: 2017Q1

REPORT INFORMATION
  Report Type: Spontaneous
  Country: KR (occurrence: KR)
  Receive Date: 20170111
  Receipt Date: 20170113
  Transmission Date: 20170428
  Serious: Yes (Other)
  Sender: FDA-Public Use
  Company Number: KR-JNJFOC-20161226030

PATIENT
  Age: 4 Decade
  Sex: Female

DRUGS (2)
  1. TYLENOL [Suspect]
     Active Substance: ACETAMINOPHEN
     Indication: DYSMENORRHOEA
     Dosage: 2 CAPLETS TOTAL ABOUT 3 TIMES
     Route: 065
     Dates: start: 201007, end: 2010
  2. TYLENOL [Suspect]
     Active Substance: ACETAMINOPHEN
     Route: 065

REACTIONS (4)
  - Expired product administered [Unknown]
  - Stupor [Unknown]
  - Liver injury [Unknown]
  - Presyncope [Unknown]

NARRATIVE: CASE EVENT DATE: 2010
